FAERS Safety Report 20011284 (Version 2)
Quarter: 2022Q1

REPORT INFORMATION
  Report Type: Spontaneous
  Country: AR (occurrence: AR)
  Receive Date: 20211028
  Receipt Date: 20220322
  Transmission Date: 20220423
  Serious: Yes (Hospitalization, Other)
  Sender: FDA-Public Use
  Company Number: AR-BIOMARINAP-AR-2021-139353

PATIENT
  Sex: Male

DRUGS (1)
  1. BRINEURA [Suspect]
     Active Substance: CERLIPONASE ALFA
     Indication: Neuronal ceroid lipofuscinosis
     Dosage: 300 MILLIGRAM
     Route: 020
     Dates: start: 20180228

REACTIONS (4)
  - Gastric disorder [Unknown]
  - Tracheal disorder [Unknown]
  - Seizure [Unknown]
  - Status epilepticus [Unknown]

NARRATIVE: CASE EVENT DATE: 20190801
